FAERS Safety Report 5212107-X (Version None)
Quarter: 2007Q1

REPORT INFORMATION
  Report Type: 
  Country: None (occurrence: None)
  Receive Date: 20070118
  Receipt Date: 20070110
  Transmission Date: 20070707
  Serious: Yes (Disabling, Other)
  Sender: FDA-Public Use
  Company Number: US-MERCK-0612USA00940

PATIENT
  Age: 57 Year
  Sex: Female
  Weight: 82 kg

DRUGS (6)
  1. FOSAMAX [Suspect]
     Route: 048
     Dates: start: 20040413, end: 20061129
  2. LISINOPRIL [Concomitant]
     Indication: HYPERTENSION
     Route: 048
  3. LEVOXYL [Concomitant]
     Indication: HYPOTHYROIDISM
     Route: 048
  4. ESTRADIOL [Concomitant]
     Indication: HOT FLUSH
     Route: 048
     Dates: start: 20061001
  5. PREMARIN [Concomitant]
     Indication: HOT FLUSH
     Route: 048
     Dates: end: 20061001
  6. METOPROLOL [Concomitant]
     Indication: MIGRAINE
     Route: 048
     Dates: start: 20061001

REACTIONS (2)
  - CEREBELLAR ATROPHY [None]
  - DYSARTHRIA [None]
